FAERS Safety Report 8999047 (Version 1)
Quarter: 2013Q1

REPORT INFORMATION
  Report Type: Spontaneous
  Country: FR (occurrence: FR)
  Receive Date: 20130103
  Receipt Date: 20130103
  Transmission Date: 20140127
  Serious: Yes (Hospitalization, Other)
  Sender: FDA-Public Use
  Company Number: FR-BRISTOL-MYERS SQUIBB COMPANY-17244500

PATIENT
  Age: 80 Year
  Sex: Female

DRUGS (10)
  1. COUMADINE [Suspect]
     Indication: PROPHYLAXIS
     Dosage: 4 MG ORALLY EVERY OTHER DAY AND 2 MG ORALLY ON THE OTHER DAY
     Route: 048
  2. DAFALGAN [Interacting]
     Indication: PAIN
     Route: 048
  3. TAHOR [Interacting]
     Indication: DYSLIPIDAEMIA
     Route: 048
  4. KARDEGIC [Interacting]
     Indication: PROPHYLAXIS
     Route: 048
     Dates: end: 20121008
  5. COVERSYL [Concomitant]
  6. LOPRESSOR [Concomitant]
  7. FIVASA [Concomitant]
     Dosage: 1DF=800 UNITS NOT SPECIFIED
  8. INEXIUM [Concomitant]
  9. NATISPRAY [Concomitant]
  10. DAFALGAN [Concomitant]

REACTIONS (5)
  - Epistaxis [Recovered/Resolved]
  - Malaise [Recovered/Resolved]
  - Vomiting [Recovered/Resolved]
  - Fall [Recovered/Resolved]
  - Drug interaction [Recovered/Resolved]
